FAERS Safety Report 16675466 (Version 8)
Quarter: 2021Q4

REPORT INFORMATION
  Report Type: Report from Study
  Country: CO (occurrence: CO)
  Receive Date: 20190806
  Receipt Date: 20211126
  Transmission Date: 20220303
  Serious: Yes (Life-Threatening, Hospitalization, Other)
  Sender: FDA-Public Use
  Company Number: PHHY2019CO116734

PATIENT
  Age: 64 Year
  Sex: Female
  Weight: 84 kg

DRUGS (12)
  1. ELTROMBOPAG OLAMINE [Suspect]
     Active Substance: ELTROMBOPAG OLAMINE
     Indication: Immune thrombocytopenia
     Dosage: 50 MG, QD
     Route: 048
     Dates: start: 20190417
  2. ELTROMBOPAG OLAMINE [Suspect]
     Active Substance: ELTROMBOPAG OLAMINE
     Dosage: 75 MG, QD
     Route: 048
     Dates: start: 201905
  3. ELTROMBOPAG OLAMINE [Suspect]
     Active Substance: ELTROMBOPAG OLAMINE
     Dosage: 100 MG, QD
     Route: 048
     Dates: start: 20190621
  4. ELTROMBOPAG OLAMINE [Suspect]
     Active Substance: ELTROMBOPAG OLAMINE
     Dosage: 75 MG, QD (MONDAY TO FRIDAY)
     Route: 048
     Dates: start: 2019
  5. ELTROMBOPAG OLAMINE [Suspect]
     Active Substance: ELTROMBOPAG OLAMINE
     Dosage: 100 MG, QD
     Route: 048
  6. ELTROMBOPAG OLAMINE [Suspect]
     Active Substance: ELTROMBOPAG OLAMINE
     Dosage: 75 MG, QD
     Route: 048
  7. ELTROMBOPAG OLAMINE [Suspect]
     Active Substance: ELTROMBOPAG OLAMINE
     Dosage: UNK, QD
     Route: 048
  8. METOCLOPRAMIDE [Suspect]
     Active Substance: METOCLOPRAMIDE
     Indication: Product used for unknown indication
     Dosage: 10 MG
     Route: 065
     Dates: end: 20190613
  9. DEXAMETHASONE [Suspect]
     Active Substance: DEXAMETHASONE
     Indication: Bradycardia
     Dosage: 40 MG, 1 TO 4 DAYS
     Route: 042
  10. DEXAMETHASONE [Suspect]
     Active Substance: DEXAMETHASONE
     Dosage: 8 MG/ML, UNK (AMPOULE)
     Route: 065
  11. ESOMEPRAZOLE [Concomitant]
     Active Substance: ESOMEPRAZOLE
     Indication: Product used for unknown indication
     Dosage: 20 MG, QD
     Route: 065
     Dates: start: 20190612
  12. ESOMEPRAZOLE [Concomitant]
     Active Substance: ESOMEPRAZOLE
     Dosage: 40 MG, Q12H
     Route: 048

REACTIONS (32)
  - Platelet count decreased [Recovered/Resolved]
  - Prescribed overdose [Unknown]
  - Bradycardia [Not Recovered/Not Resolved]
  - Heart rate decreased [Unknown]
  - Atrial tachycardia [Unknown]
  - Sinus node dysfunction [Unknown]
  - General physical health deterioration [Unknown]
  - Atrioventricular dissociation [Unknown]
  - Bradyarrhythmia [Unknown]
  - Wheezing [Unknown]
  - Nervous system disorder [Unknown]
  - Blood pressure systolic increased [Unknown]
  - Blood pressure diastolic decreased [Unknown]
  - Gastrointestinal disorder [Unknown]
  - Cerebral haemorrhage [Unknown]
  - Hypokalaemia [Unknown]
  - Thrombosis [Unknown]
  - Cerebral infarction [Unknown]
  - Cerebrovascular accident [Unknown]
  - Thrombocytopenic purpura [Unknown]
  - Disease recurrence [Unknown]
  - Platelet count increased [Unknown]
  - Platelet count decreased [Unknown]
  - Therapy non-responder [Unknown]
  - Drug ineffective [Unknown]
  - Lymphoproliferative disorder [Recovered/Resolved]
  - Bone marrow failure [Unknown]
  - Petechiae [Unknown]
  - Inflammation [Unknown]
  - Anaemia [Unknown]
  - Drug intolerance [Unknown]
  - Pain [Unknown]

NARRATIVE: CASE EVENT DATE: 20190525
